FAERS Safety Report 6814622 (Version 7)
Quarter: 2013Q3

REPORT INFORMATION
  Report Type: Spontaneous
  Country: JP (occurrence: JP)
  Receive Date: 20081118
  Receipt Date: 20130702
  Transmission Date: 20140515
  Serious: Yes (Life-Threatening, Hospitalization)
  Sender: FDA-Public Use
  Company Number: JP-SANOFI-AVENTIS-200813505JP

PATIENT
  Age: 76 Year
  Sex: Male
  Weight: 59 kg

DRUGS (11)
  1. NU-LOTAN [Suspect]
     Indication: HYPERTENSION
     Dosage: DOSE UNIT: 50 MG
     Route: 048
     Dates: start: 20080918, end: 20080922
  2. NU-LOTAN [Suspect]
     Indication: HYPERTENSION
     Dosage: DOSE UNIT: 50 MG
     Route: 048
     Dates: start: 20080923, end: 20080926
  3. LASIX [Suspect]
     Indication: RENAL FAILURE CHRONIC
     Dosage: DOSE UNIT: 20 MG
     Route: 048
     Dates: start: 20080923, end: 20080929
  4. PREDNISOLONE [Suspect]
     Indication: STEROID THERAPY
     Route: 048
     Dates: start: 20081002
  5. PREDNISOLONE [Suspect]
     Indication: STEROID THERAPY
     Route: 048
     Dates: start: 20081006, end: 20081009
  6. METHYLPREDNISOLONE [Suspect]
     Indication: STEROID THERAPY
     Route: 065
     Dates: start: 20081004, end: 20081005
  7. LIPITOR [Concomitant]
     Indication: DYSLIPIDAEMIA
     Dosage: DOSE AS USED: 1 TABLET/DAY
     Route: 048
     Dates: start: 20080918, end: 20080926
  8. ZYLORIC [Concomitant]
     Indication: HYPERURICAEMIA
     Dosage: DOSE AS USED: 1 TABLET/DAY
     Route: 048
     Dates: end: 20081005
  9. NORVASC [Concomitant]
     Indication: HYPERTENSION
     Dosage: DOSE UNIT: 5 MG
     Route: 048
     Dates: end: 20081005
  10. KREMEZIN [Concomitant]
     Indication: RENAL FAILURE CHRONIC
     Dosage: DOSE UNIT: 2 G
     Route: 048
     Dates: start: 20080918, end: 20081002
  11. FLUITRAN [Concomitant]
     Dosage: DOSE AS USED: 0.5 TABLET/DAY
     Route: 048
     Dates: end: 20080922

REACTIONS (22)
  - Toxic epidermal necrolysis [Recovering/Resolving]
  - Rash [Recovering/Resolving]
  - Pruritus [Recovering/Resolving]
  - Pyrexia [Unknown]
  - Nikolsky^s sign [Recovered/Resolved]
  - Skin exfoliation [Recovering/Resolving]
  - Skin erosion [Recovered/Resolved]
  - Erythema [Recovered/Resolved]
  - Rash [Recovering/Resolving]
  - Pigmentation disorder [Unknown]
  - Bronchial disorder [Recovering/Resolving]
  - Hypoxia [Recovering/Resolving]
  - Renal failure acute [Recovering/Resolving]
  - Blood urea increased [Recovering/Resolving]
  - Blood creatinine increased [Recovered/Resolved]
  - Heart rate increased [Unknown]
  - Blood pressure decreased [Unknown]
  - Laceration [Unknown]
  - Haematemesis [Unknown]
  - Gastrointestinal haemorrhage [Unknown]
  - Abscess oral [Unknown]
  - Drug ineffective [Unknown]
